FAERS Safety Report 7051487-X (Version None)
Quarter: 2010Q4

REPORT INFORMATION
  Report Type: 
  Country: None (occurrence: None)
  Receive Date: 20101019
  Receipt Date: 20101012
  Transmission Date: 20110411
  Serious: Yes (Hospitalization)
  Sender: FDA-Public Use
  Company Number: B0678935A

PATIENT
  Sex: Female

DRUGS (14)
  1. DEROXAT [Suspect]
     Indication: ANXIETY
     Dosage: 20MG PER DAY
     Route: 048
     Dates: start: 20100501, end: 20100713
  2. ATARAX [Suspect]
     Indication: PRODUCT USED FOR UNKNOWN INDICATION
     Dosage: 25MG PER DAY
     Route: 048
     Dates: end: 20100713
  3. ARICEPT [Suspect]
     Dosage: 10MG PER DAY
     Route: 048
     Dates: start: 20050101, end: 20100713
  4. DIGITALINE NATIVELLE [Suspect]
     Indication: PRODUCT USED FOR UNKNOWN INDICATION
     Dosage: .25MG PER DAY
     Route: 048
     Dates: end: 20100715
  5. STILNOX [Suspect]
     Indication: PRODUCT USED FOR UNKNOWN INDICATION
     Dosage: 10MG PER DAY
     Route: 048
     Dates: end: 20100713
  6. LEVOTHYROXINE SODIUM [Suspect]
     Indication: PRODUCT USED FOR UNKNOWN INDICATION
     Dosage: 50MCG PER DAY
     Route: 048
     Dates: end: 20100713
  7. ALFUZOSIN HCL [Concomitant]
     Route: 065
  8. LASIX [Concomitant]
     Route: 065
  9. CANDESARTAN CILEXETIL [Concomitant]
     Route: 065
  10. KARDEGIC [Concomitant]
     Route: 065
  11. URAPIDIL [Concomitant]
     Route: 065
  12. SPASFON [Concomitant]
     Route: 065
  13. FERROUS SUCCINATE [Concomitant]
     Route: 065
  14. SUCCINIC ACID [Concomitant]
     Route: 065

REACTIONS (8)
  - DEHYDRATION [None]
  - GAIT DISTURBANCE [None]
  - HYPERKALAEMIA [None]
  - HYPERTONIA [None]
  - PERSONALITY CHANGE [None]
  - SOMNOLENCE [None]
  - TREMOR [None]
  - URINARY RETENTION [None]
